FAERS Safety Report 5447829-9 (Version None)
Quarter: 2007Q3

REPORT INFORMATION
  Report Type: 
  Country: None (occurrence: None)
  Receive Date: 20070910
  Receipt Date: 20070829
  Transmission Date: 20080115
  Serious: Yes (Hospitalization, Other)
  Sender: FDA-Public Use
  Company Number: CH-ELI_LILLY_AND_COMPANY-CH200708004985

PATIENT
  Age: 37 Year
  Sex: Female

DRUGS (3)
  1. CYMBALTA [Suspect]
     Dosage: 60 MG, DAILY (1/D)
     Route: 048
     Dates: start: 20061001, end: 20070701
  2. LITHIUM CARBONATE [Concomitant]
     Dosage: 1 D/F, EACH MORNING
  3. LITHIUM CARBONATE [Concomitant]
     Dosage: 0.5 D/F, EACH EVENING

REACTIONS (5)
  - ASCITES [None]
  - CONGESTIVE CARDIOMYOPATHY [None]
  - PERICARDIAL EFFUSION [None]
  - PLEURAL EFFUSION [None]
  - PULMONARY EMBOLISM [None]
